FAERS Safety Report 23118238 (Version 2)
Quarter: 2024Q1

REPORT INFORMATION
  Report Type: Report from Study
  Country: US (occurrence: US)
  Receive Date: 20231027
  Receipt Date: 20240105
  Transmission Date: 20240410
  Serious: No
  Sender: FDA-Public Use
  Company Number: US-002147023-NVSC2023US228856

PATIENT
  Sex: Male

DRUGS (1)
  1. KESIMPTA [Suspect]
     Active Substance: OFATUMUMAB
     Indication: Relapsing multiple sclerosis
     Dosage: 0.4 ML, QW, OTHER DOSE 20MG
     Route: 058
     Dates: start: 20230324

REACTIONS (3)
  - Headache [Unknown]
  - Myalgia [Unknown]
  - Fatigue [Unknown]
